FAERS Safety Report 21016743 (Version 2)
Quarter: 2022Q4

REPORT INFORMATION
  Report Type: Report from Study
  Country: US (occurrence: US)
  Receive Date: 20220628
  Receipt Date: 20221015
  Transmission Date: 20230112
  Serious: Yes (Other)
  Sender: FDA-Public Use
  Company Number: US-ABBVIE-22K-163-4447929-00

PATIENT
  Age: 82 Year
  Sex: Male
  Weight: 82.553 kg

DRUGS (1)
  1. IMBRUVICA [Suspect]
     Active Substance: IBRUTINIB
     Indication: B-cell small lymphocytic lymphoma
     Route: 048
     Dates: start: 202002

REACTIONS (1)
  - Dental care [Recovered/Resolved]

NARRATIVE: CASE EVENT DATE: 20220530
